FAERS Safety Report 6424228-4 (Version None)
Quarter: 2009Q4

REPORT INFORMATION
  Report Type: 
  Country: None (occurrence: None)
  Receive Date: 20091102
  Receipt Date: 20091021
  Transmission Date: 20100525
  Serious: Yes (Death)
  Sender: FDA-Public Use
  Company Number: PH-PFIZER INC-2009286863

PATIENT
  Age: 41 Year
  Sex: Female

DRUGS (2)
  1. CELEBREX [Suspect]
  2. OLMETEC [Suspect]

REACTIONS (1)
  - DEATH [None]
